FAERS Safety Report 19382534 (Version 1)
Quarter: 2021Q2

REPORT INFORMATION
  Report Type: Spontaneous
  Country: PT (occurrence: PT)
  Receive Date: 20210607
  Receipt Date: 20210607
  Transmission Date: 20210717
  Serious: Yes (Hospitalization)
  Sender: FDA-Public Use
  Company Number: PT-BAYER-2021-149458

PATIENT
  Age: 49 Year
  Sex: Female

DRUGS (1)
  1. LEVONORGESTREL IUS [UNKNOWN] [Suspect]
     Active Substance: LEVONORGESTREL
     Route: 015

REACTIONS (1)
  - Actinomycosis [Recovered/Resolved]
